FAERS Safety Report 9653068 (Version 1)
Quarter: 2013Q4

REPORT INFORMATION
  Report Type: Spontaneous
  Country: US (occurrence: US)
  Receive Date: 20131029
  Receipt Date: 20131029
  Transmission Date: 20140711
  Serious: No
  Sender: FDA-Public Use
  Company Number: US-BIOGENIDEC-2013BI078539

PATIENT
  Age: 45 Year
  Sex: Female
  Weight: 81 kg

DRUGS (7)
  1. TECFIDERA [Suspect]
     Indication: MULTIPLE SCLEROSIS
     Route: 048
     Dates: start: 20130804, end: 20130810
  2. TECFIDERA [Suspect]
     Indication: MULTIPLE SCLEROSIS
     Route: 048
     Dates: start: 20130811, end: 20130811
  3. VITAMIN B12 [Concomitant]
     Indication: PRODUCT USED FOR UNKNOWN INDICATION
  4. TRAZODONE [Concomitant]
     Indication: PRODUCT USED FOR UNKNOWN INDICATION
  5. VITAMIN D [Concomitant]
     Indication: PRODUCT USED FOR UNKNOWN INDICATION
  6. TUMS [Concomitant]
     Indication: PRODUCT USED FOR UNKNOWN INDICATION
  7. TESSALON PER [Concomitant]
     Indication: PRODUCT USED FOR UNKNOWN INDICATION

REACTIONS (15)
  - Local swelling [Not Recovered/Not Resolved]
  - Pharyngeal oedema [Not Recovered/Not Resolved]
  - Anorectal swelling [Not Recovered/Not Resolved]
  - Vulvovaginal swelling [Unknown]
  - Insomnia [Unknown]
  - Abdominal distension [Unknown]
  - Muscular weakness [Unknown]
  - Paraesthesia [Unknown]
  - Dizziness [Unknown]
  - Cough [Unknown]
  - Chills [Unknown]
  - Peripheral coldness [Unknown]
  - Fatigue [Unknown]
  - Dyspepsia [Unknown]
  - Diarrhoea [Recovered/Resolved]
